FAERS Safety Report 5680185-X (Version None)
Quarter: 2008Q1

REPORT INFORMATION
  Report Type: 
  Country: None (occurrence: None)
  Receive Date: 20080326
  Receipt Date: 20080317
  Transmission Date: 20080703
  Serious: Yes (Other)
  Sender: FDA-Public Use
  Company Number: GB-BRISTOL-MYERS SQUIBB COMPANY-14123715

PATIENT
  Age: 39 Year
  Sex: Female

DRUGS (7)
  1. CYCLOPHOSPHAMIDE [Suspect]
     Indication: B-CELL LYMPHOMA
     Route: 065
     Dates: start: 20080213
  2. DOXORUBICIN HCL [Suspect]
     Indication: NON-HODGKIN'S LYMPHOMA
     Route: 065
     Dates: start: 20080213
  3. ONCOVIN [Suspect]
     Indication: NON-HODGKIN'S LYMPHOMA
     Route: 065
     Dates: start: 20080213
  4. PREDNISOLONE [Suspect]
     Route: 065
     Dates: start: 20080213
  5. ALLOPURINOL [Concomitant]
  6. DOMPERIDONE [Concomitant]
  7. OMEPRAZOLE [Concomitant]

REACTIONS (3)
  - EAR PAIN [None]
  - HEADACHE [None]
  - PAIN IN JAW [None]
